FAERS Safety Report 7096350-3 (Version None)
Quarter: 2010Q4

REPORT INFORMATION
  Report Type: 
  Country: None (occurrence: None)
  Receive Date: 20101111
  Receipt Date: 20101102
  Transmission Date: 20110411
  Serious: Yes (Hospitalization)
  Sender: FDA-Public Use
  Company Number: JP-JNJFOC-20101007822

PATIENT
  Sex: Female

DRUGS (16)
  1. GOLIMUMAB [Suspect]
     Indication: RHEUMATOID ARTHRITIS
     Route: 058
  2. PREDNISONE [Concomitant]
     Indication: RHEUMATOID ARTHRITIS
     Route: 048
  3. SODIUM HYALURONATE [Concomitant]
     Indication: DRY EYE
     Route: 047
  4. ZANTAC [Concomitant]
     Indication: GASTRITIS
     Route: 048
  5. THEO-DUR [Concomitant]
     Indication: HYPERSENSITIVITY
     Route: 048
  6. GASTROM [Concomitant]
     Indication: GASTRITIS
     Route: 048
  7. QVAR 40 [Concomitant]
     Indication: HYPERSENSITIVITY
     Route: 055
  8. HYPEN [Concomitant]
     Indication: RHEUMATOID ARTHRITIS
     Route: 048
  9. MAGMITT [Concomitant]
     Indication: CONSTIPATION
     Route: 048
  10. METHOTREXATE [Concomitant]
     Indication: RHEUMATOID ARTHRITIS
     Route: 048
  11. FOLIAMIN [Concomitant]
     Indication: UNEVALUABLE EVENT
     Route: 048
  12. ADETPHOS [Concomitant]
     Indication: TINNITUS
     Route: 048
  13. CYANOCOBALAMIN [Concomitant]
     Indication: TINNITUS
     Route: 048
  14. OPALMON [Concomitant]
     Indication: BACK PAIN
     Route: 048
  15. JUVELA N [Concomitant]
     Indication: BACK PAIN
     Route: 048
  16. SODIUM GUALENATE [Concomitant]
     Indication: PROPHYLAXIS
     Route: 049

REACTIONS (3)
  - HERPES ZOSTER [None]
  - NASAL CONGESTION [None]
  - OROPHARYNGEAL PAIN [None]
